FAERS Safety Report 6462459-8 (Version None)
Quarter: 2009Q4

REPORT INFORMATION
  Report Type: 
  Country: None (occurrence: None)
  Receive Date: 20091130
  Receipt Date: 20091120
  Transmission Date: 20100525
  Serious: Yes (Other)
  Sender: FDA-Public Use
  Company Number: GB-BAYER-200940395GPV

PATIENT
  Sex: Female

DRUGS (1)
  1. CIPROXIN [Suspect]
     Indication: DRUG USE FOR UNKNOWN INDICATION
     Dates: start: 20090801, end: 20090801

REACTIONS (5)
  - AGITATION [None]
  - ARTHRALGIA [None]
  - MUSCLE RUPTURE [None]
  - MUSCULAR WEAKNESS [None]
  - NERVOUSNESS [None]
